FAERS Safety Report 6504640-5 (Version None)
Quarter: 2009Q4

REPORT INFORMATION
  Report Type: 
  Country: None (occurrence: None)
  Receive Date: 20091218
  Receipt Date: 20091208
  Transmission Date: 20100525
  Serious: Yes (Hospitalization)
  Sender: FDA-Public Use
  Company Number: US-BIOGENIDEC-2009BI027212

PATIENT
  Age: 46 Year
  Sex: Female
  Weight: 104 kg

DRUGS (1)
  1. TYSABRI [Suspect]
     Indication: MULTIPLE SCLEROSIS
     Route: 042
     Dates: start: 20071114

REACTIONS (18)
  - ADVERSE DRUG REACTION [None]
  - APHAGIA [None]
  - DYSPHAGIA [None]
  - DYSPNOEA [None]
  - ENERGY INCREASED [None]
  - FATIGUE [None]
  - GENERAL SYMPTOM [None]
  - HYPERHIDROSIS [None]
  - INFECTION [None]
  - MULTIPLE SCLEROSIS RELAPSE [None]
  - NASOPHARYNGITIS [None]
  - PANIC ATTACK [None]
  - PSYCHOTIC DISORDER [None]
  - RASH [None]
  - RASH GENERALISED [None]
  - STRESS [None]
  - URTICARIA [None]
  - WEIGHT INCREASED [None]
